FAERS Safety Report 7498026-7 (Version None)
Quarter: 2011Q2

REPORT INFORMATION
  Report Type: 
  Country: None (occurrence: None)
  Receive Date: 20110524
  Receipt Date: 20110511
  Transmission Date: 20111010
  Serious: No
  Sender: FDA-Public Use
  Company Number: US-BIOGENIDEC-2011BI017906

PATIENT
  Sex: Female

DRUGS (2)
  1. TYSABRI [Suspect]
     Indication: MULTIPLE SCLEROSIS
     Route: 042
     Dates: start: 19980501
  2. TYSABRI [Suspect]
     Route: 042

REACTIONS (5)
  - VISUAL ACUITY REDUCED [None]
  - IMPAIRED DRIVING ABILITY [None]
  - MUSCULOSKELETAL STIFFNESS [None]
  - HYPOAESTHESIA [None]
  - LOSS OF CONTROL OF LEGS [None]
